FAERS Safety Report 24902006 (Version 2)
Quarter: 2025Q1

REPORT INFORMATION
  Report Type: Spontaneous
  Country: CA (occurrence: CA)
  Receive Date: 20250129
  Receipt Date: 20250205
  Transmission Date: 20250409
  Serious: Yes (Hospitalization, Other)
  Sender: CELLTRION
  Company Number: CA-CELLTRION INC.-2025CA002404

PATIENT

DRUGS (14)
  1. YUFLYMA [Suspect]
     Active Substance: ADALIMUMAB-AATY
     Indication: Hidradenitis
  2. BIACNA [Concomitant]
     Dates: start: 202105
  3. FUROSEMIDE [Concomitant]
     Active Substance: FUROSEMIDE
     Dates: start: 2015
  4. HUMALOG [Concomitant]
     Active Substance: INSULIN LISPRO
     Dates: start: 2005
  5. LANSOPRAZOLE [Concomitant]
     Active Substance: LANSOPRAZOLE
     Dates: start: 2015, end: 20250109
  6. LUTEIN [Concomitant]
     Active Substance: LUTEIN
     Dates: start: 2019
  7. METFORMIN [Concomitant]
     Active Substance: METFORMIN HYDROCHLORIDE
     Dates: start: 2005
  8. NADOLOL [Concomitant]
     Active Substance: NADOLOL
     Dates: start: 2015
  9. PANTOPRAZOLE [Concomitant]
     Active Substance: PANTOPRAZOLE
     Dates: start: 20250109
  10. ROSUVASTATIN [Concomitant]
     Active Substance: ROSUVASTATIN
     Dates: start: 2005
  11. SPIRONOLACTONE [Concomitant]
     Active Substance: SPIRONOLACTONE
     Dates: start: 2015
  12. TOUJEO [Concomitant]
     Active Substance: INSULIN GLARGINE
     Dates: start: 2005
  13. VITAMIN B12 [Concomitant]
     Active Substance: CYANOCOBALAMIN
     Dates: start: 2019
  14. VIT D [VITAMIN D NOS] [Concomitant]
     Dates: start: 2019

REACTIONS (1)
  - Duodenal ulcer haemorrhage [Recovered/Resolved]

NARRATIVE: CASE EVENT DATE: 20250104
